FAERS Safety Report 21607755 (Version 2)
Quarter: 2023Q1

REPORT INFORMATION
  Report Type: Spontaneous
  Country: JP (occurrence: JP)
  Receive Date: 20221117
  Receipt Date: 20230223
  Transmission Date: 20230418
  Serious: Yes (Other)
  Sender: FDA-Public Use
  Company Number: JP-MSD-M2022-48064

PATIENT
  Age: 33 Year
  Sex: Female
  Weight: 44 kg

DRUGS (5)
  1. KEYTRUDA [Suspect]
     Active Substance: PEMBROLIZUMAB
     Indication: Triple negative breast cancer
     Dosage: 200 MILLIGRAM
     Route: 041
     Dates: start: 20221027, end: 20221027
  2. CARBOPLATIN [Suspect]
     Active Substance: CARBOPLATIN
     Indication: Triple negative breast cancer
     Dosage: UNK, ONCE
     Route: 041
     Dates: start: 20221027, end: 20221102
  3. CARBOPLATIN [Suspect]
     Active Substance: CARBOPLATIN
     Dosage: UNK, ONCE
     Route: 041
     Dates: start: 20221201, end: 202212
  4. PACLITAXEL [Suspect]
     Active Substance: PACLITAXEL
     Indication: Triple negative breast cancer
     Dosage: UNK, ONCE
     Route: 041
     Dates: start: 20221027, end: 20221102
  5. PACLITAXEL [Suspect]
     Active Substance: PACLITAXEL
     Dosage: UNK, ONCE
     Route: 041
     Dates: start: 20221201, end: 202212

REACTIONS (7)
  - Stomatitis haemorrhagic [Recovered/Resolved]
  - Lip swelling [Recovered/Resolved]
  - Erythema [Recovered/Resolved]
  - Urticaria [Recovered/Resolved]
  - Pyrexia [Recovered/Resolved]
  - Urticaria [Recovered/Resolved]
  - Pyrexia [Recovered/Resolved]

NARRATIVE: CASE EVENT DATE: 20221106
